FAERS Safety Report 5194149-6 (Version None)
Quarter: 2006Q4

REPORT INFORMATION
  Report Type: 
  Country: None (occurrence: None)
  Receive Date: 20061222
  Receipt Date: 20061219
  Transmission Date: 20070319
  Serious: Yes (Hospitalization)
  Sender: FDA-Public Use
  Company Number: HQWYE886121DEC06

PATIENT
  Sex: Male

DRUGS (19)
  1. RAPAMUNE [Suspect]
     Indication: HEART TRANSPLANT
     Dosage: ORAL; 0.5 MG 1X PER 1 DAY, ORAL
     Route: 048
     Dates: start: 20021201, end: 20021201
  2. RAPAMUNE [Suspect]
     Indication: HEART TRANSPLANT
     Dosage: ORAL; 0.5 MG 1X PER 1 DAY, ORAL
     Route: 048
     Dates: start: 20060101, end: 20061212
  3. RAPAMUNE [Suspect]
     Indication: HEART TRANSPLANT
     Dosage: ORAL; 0.5 MG 1X PER 1 DAY, ORAL
     Route: 048
     Dates: start: 20061213
  4. CELLCEPT [Suspect]
     Dates: start: 20021201, end: 20021201
  5. CELLCEPT [Suspect]
     Dates: start: 20060101, end: 20060101
  6. PREDNISONE TAB [Concomitant]
  7. URSO (URSODEOXYCHOLIC ACID) [Concomitant]
  8. FOLIC ACID [Concomitant]
  9. PROTONIX [Concomitant]
  10. ZETIA [Concomitant]
  11. MYCELEX [Concomitant]
  12. HYDRALAZINE HCL [Concomitant]
  13. MAGNESIUM OXIDE (MAGNESIUM OXIDE) [Concomitant]
  14. PRAVASTATIN [Concomitant]
  15. COREG [Concomitant]
  16. ISORDIL [Concomitant]
  17. MYCOPHENOLIC ACID [Concomitant]
  18. ALDACTONE [Concomitant]
  19. BUMEX [Concomitant]

REACTIONS (5)
  - BLOOD CHOLESTEROL INCREASED [None]
  - CARDIAC FAILURE [None]
  - COMPLICATIONS OF TRANSPLANTED HEART [None]
  - NAUSEA [None]
  - VOMITING [None]
